FAERS Safety Report 5275779-X (Version None)
Quarter: 2007Q1

REPORT INFORMATION
  Report Type: 
  Country: None (occurrence: None)
  Receive Date: 20070326
  Receipt Date: 20070315
  Transmission Date: 20070707
  Serious: Yes (Death, Hospitalization)
  Sender: FDA-Public Use
  Company Number: 2007-0452

PATIENT
  Age: 69 Year
  Sex: Male

DRUGS (9)
  1. REQUIP [Suspect]
     Indication: PARKINSON'S DISEASE
     Dosage: 1TAB THREE TIMES PER DAY
     Route: 048
  2. CORDARONE [Suspect]
     Dosage: 1TAB PER DAY
     Route: 048
     Dates: start: 20070201, end: 20070222
  3. LASIX [Suspect]
     Dosage: 20MG PER DAY
     Route: 048
     Dates: start: 20061215, end: 20070222
  4. MODOPAR [Suspect]
     Indication: PARKINSON'S DISEASE
     Route: 048
  5. SINEMET [Suspect]
     Indication: PARKINSON'S DISEASE
     Dosage: 50MG TWICE PER DAY
     Route: 048
  6. KETOPROFEN [Suspect]
     Route: 048
     Dates: start: 20070210, end: 20070222
  7. ATACAND [Suspect]
     Dosage: 8MG PER DAY
     Route: 048
     Dates: start: 20061215, end: 20070222
  8. STALEVO 100 [Suspect]
     Indication: PARKINSON'S DISEASE
     Dosage: 1TAB THREE TIMES PER DAY
     Route: 048
  9. BURINEX [Concomitant]
     Route: 065
     Dates: start: 20070222

REACTIONS (6)
  - ANAEMIA [None]
  - DYSPNOEA [None]
  - MELAENA [None]
  - NEUTROPENIA [None]
  - PURPURA [None]
  - THROMBOCYTOPENIA [None]
